FAERS Safety Report 5208100-3 (Version None)
Quarter: 2007Q1

REPORT INFORMATION
  Report Type: 
  Country: None (occurrence: None)
  Receive Date: 20070115
  Receipt Date: 20070108
  Transmission Date: 20070707
  Serious: Yes (Hospitalization)
  Sender: FDA-Public Use
  Company Number: US-ABBOTT-07P-163-0355280-00

PATIENT
  Sex: Female
  Weight: 88.53 kg

DRUGS (1)
  1. DEPAKOTE ER [Suspect]
     Indication: EPILEPSY
     Route: 048
     Dates: start: 19840101, end: 20020101

REACTIONS (4)
  - PANCREATECTOMY [None]
  - PANCREATIC CYST [None]
  - PANCREATIC DISORDER [None]
  - PANCREATITIS CHRONIC [None]
